FAERS Safety Report 7732254-8 (Version None)
Quarter: 2011Q3

REPORT INFORMATION
  Report Type: 
  Country: None (occurrence: None)
  Receive Date: 20110906
  Receipt Date: 20110825
  Transmission Date: 20111222
  Serious: Yes (Hospitalization)
  Sender: FDA-Public Use
  Company Number: CA-ASTRAZENECA-2011SE39270

PATIENT
  Age: 70 Year
  Sex: Male
  Weight: 101.6 kg

DRUGS (10)
  1. CRESTOR [Suspect]
     Route: 048
  2. NOVORAPID [Concomitant]
     Dosage: 26 UNITS BREAKFAST 26 UNITS LUNCH 56 UNITS EVENING
     Route: 058
  3. VIMOVO [Suspect]
     Route: 048
  4. COVERAYE [Concomitant]
  5. SEVEMIR [Concomitant]
     Route: 048
  6. PENTOXIFYLLINE SR [Concomitant]
     Route: 048
  7. METOPROLOL [Concomitant]
     Route: 048
  8. RABEPRAZOLE SODIUM [Concomitant]
     Route: 048
  9. METFORMIN HCL [Concomitant]
     Route: 048
  10. ASPIRIN [Concomitant]
     Route: 065

REACTIONS (2)
  - HEPATITIS [None]
  - ARTHRALGIA [None]
